FAERS Safety Report 9357189 (Version 1)
Quarter: 2013Q2

REPORT INFORMATION
  Report Type: Spontaneous
  Country: US (occurrence: US)
  Receive Date: 20130620
  Receipt Date: 20130620
  Transmission Date: 20140414
  Serious: No
  Sender: FDA-Public Use
  Company Number: US-BIOGENIDEC-2013BI054427

PATIENT
  Sex: Female

DRUGS (1)
  1. AVONEX [Suspect]
     Indication: MULTIPLE SCLEROSIS
     Route: 030
     Dates: start: 20130426

REACTIONS (4)
  - Feeling cold [Recovered/Resolved with Sequelae]
  - Poor quality sleep [Recovered/Resolved with Sequelae]
  - Pain [Recovered/Resolved with Sequelae]
  - Hot flush [Recovered/Resolved with Sequelae]
